FAERS Safety Report 23555076 (Version 2)
Quarter: 2024Q1

REPORT INFORMATION
  Report Type: Spontaneous
  Country: MA (occurrence: MA)
  Receive Date: 20240222
  Receipt Date: 20240304
  Transmission Date: 20240410
  Serious: Yes (Death, Life-Threatening, Hospitalization, Other)
  Sender: FDA-Public Use
  Company Number: MA-ELI_LILLY_AND_COMPANY-MA202402012214

PATIENT
  Age: 40 Year
  Sex: Male
  Weight: 59 kg

DRUGS (3)
  1. ALIMTA [Suspect]
     Active Substance: PEMETREXED DISODIUM
     Indication: Lung carcinoma cell type unspecified stage I
     Dosage: 500 MG, OTHER (500MG ONE CURE)
     Route: 065
     Dates: start: 20240122, end: 20240122
  2. CARBOPLATIN [Concomitant]
     Active Substance: CARBOPLATIN
     Indication: Non-small cell lung cancer stage I
     Dosage: 190 MG, OTHER (190MG, ONE CURE)
     Route: 042
     Dates: start: 20240122, end: 20240122
  3. KEYTRUDA [Concomitant]
     Active Substance: PEMBROLIZUMAB
     Indication: Non-small cell lung cancer stage I
     Dosage: 200 MG, OTHER (ONE CURE)
     Route: 042
     Dates: start: 20240122, end: 20240122

REACTIONS (11)
  - Febrile bone marrow aplasia [Fatal]
  - Skin reaction [Fatal]
  - Cardio-respiratory arrest [Unknown]
  - Septic shock [Unknown]
  - Oral candidiasis [Unknown]
  - Infection [Unknown]
  - Vasculitis [Unknown]
  - Toxic epidermal necrolysis [Unknown]
  - Skin exfoliation [Unknown]
  - Hyperthyroidism [Unknown]
  - Vomiting [Unknown]

NARRATIVE: CASE EVENT DATE: 20240201
